FAERS Safety Report 10563398 (Version 1)
Quarter: 2014Q4

REPORT INFORMATION
  Report Type: Spontaneous
  Country: US (occurrence: None)
  Receive Date: 20141103
  Receipt Date: 20141103
  Transmission Date: 20150529
  Serious: No
  Sender: FDA-Public Use
  Company Number: None

PATIENT
  Age: 24 Year
  Sex: Male
  Weight: 79.38 kg

DRUGS (1)
  1. WELLBUTRIN [Suspect]
     Active Substance: BUPROPION HYDROCHLORIDE
     Indication: MAJOR DEPRESSION
     Dosage: 150 MG/1 PILL
     Route: 048
     Dates: start: 20141021, end: 20141101

REACTIONS (8)
  - Constipation [None]
  - Dizziness [None]
  - Depression [None]
  - Vomiting [None]
  - Product quality issue [None]
  - Product substitution issue [None]
  - Nausea [None]
  - Insomnia [None]
